FAERS Safety Report 7691969-0 (Version None)
Quarter: 2011Q3

REPORT INFORMATION
  Report Type: 
  Country: None (occurrence: None)
  Receive Date: 20110818
  Receipt Date: 20110815
  Transmission Date: 20111222
  Serious: Yes (Hospitalization)
  Sender: FDA-Public Use
  Company Number: US-AMGEN-USASP2011041221

PATIENT
  Age: 67 Year
  Sex: Female

DRUGS (10)
  1. DECADRON [Concomitant]
  2. PEGFILGRASTIM [Suspect]
     Indication: UTERINE LEIOMYOSARCOMA
     Dosage: 150 MG/M2, UNK
     Route: 058
     Dates: start: 20110526
  3. GEMCITABINE [Suspect]
     Indication: UTERINE LEIOMYOSARCOMA
     Dosage: 900 MG/M2, UNK
     Route: 042
     Dates: start: 20110526
  4. MS CONTIN [Concomitant]
  5. ATIVAN [Concomitant]
  6. FUROSEMIDE [Concomitant]
  7. LACTULOSE [Concomitant]
  8. BEVACIZUMAB [Suspect]
     Indication: UTERINE LEIOMYOSARCOMA
     Dosage: UNK
     Route: 042
     Dates: start: 20110526
  9. DOCETAXEL [Suspect]
     Indication: UTERINE LEIOMYOSARCOMA
     Dosage: 75 MG/M2, UNK
     Dates: start: 20110526
  10. COMPAZINE [Concomitant]

REACTIONS (3)
  - BLOOD UREA INCREASED [None]
  - HYPERKALAEMIA [None]
  - BLOOD CREATININE INCREASED [None]
